FAERS Safety Report 8494922-2 (Version None)
Quarter: 2012Q3

REPORT INFORMATION
  Report Type: 
  Country: None (occurrence: None)
  Receive Date: 20120709
  Receipt Date: 20120704
  Transmission Date: 20120928
  Serious: Yes (Other)
  Sender: FDA-Public Use
  Company Number: VE-PFIZER INC-2012160446

PATIENT
  Sex: Female

DRUGS (2)
  1. LYRICA [Concomitant]
     Dosage: UNK
  2. LIPITOR [Suspect]
     Dosage: UNK

REACTIONS (3)
  - OSTEOPOROSIS [None]
  - THROMBOSIS [None]
  - INTERVERTEBRAL DISC PROTRUSION [None]
